FAERS Safety Report 12283424 (Version 3)
Quarter: 2016Q2

REPORT INFORMATION
  Report Type: Report from Study
  Country: US (occurrence: US)
  Receive Date: 20160419
  Receipt Date: 20160520
  Transmission Date: 20160815
  Serious: Yes (Life-Threatening, Hospitalization)
  Sender: FDA-Public Use
  Company Number: US-ACTELION-A-NJ2016-134646

PATIENT
  Age: 54 Year
  Sex: Male

DRUGS (3)
  1. VELETRI [Suspect]
     Active Substance: EPOPROSTENOL
     Indication: PULMONARY ARTERIAL HYPERTENSION
     Dosage: 17.3 NG/KG, PER MIN
     Route: 042
     Dates: start: 20100415
  2. ADCIRCA [Concomitant]
     Active Substance: TADALAFIL
  3. VELETRI [Suspect]
     Active Substance: EPOPROSTENOL
     Dosage: 21.5 NG/KG, PER MIN
     Route: 042
     Dates: start: 20100415

REACTIONS (4)
  - Medical device change [Unknown]
  - Influenza [Unknown]
  - Feeling abnormal [Unknown]
  - Device related infection [Unknown]

NARRATIVE: CASE EVENT DATE: 20160407
